FAERS Safety Report 4304527-2 (Version None)
Quarter: 2004Q1

REPORT INFORMATION
  Report Type: 
  Country: None (occurrence: None)
  Receive Date: 20040224
  Receipt Date: 20040212
  Transmission Date: 20041129
  Serious: Yes (Hospitalization)
  Sender: FDA-Public Use
  Company Number: 2004001504

PATIENT
  Age: 92 Year
  Sex: Female
  Weight: 79.5 kg

DRUGS (8)
  1. NEURONTIN [Suspect]
     Indication: CONVULSION
     Dosage: 900 MG (TID) , ORAL
     Route: 048
     Dates: end: 20031122
  2. ENALAPRIL MALEATE [Concomitant]
  3. METHIMAZOLE [Concomitant]
  4. DOXEPIN HCL [Concomitant]
  5. TORSEMIDE [Concomitant]
  6. TAURIZINE (TAURINE, ASPARTATE ZINC) [Concomitant]
  7. METAMIZOLE SODIUM (METAMIZOLE SODIUM) [Concomitant]
  8. TRAMADOL HCL [Concomitant]

REACTIONS (6)
  - APHASIA [None]
  - CONFUSIONAL STATE [None]
  - DRUG LEVEL INCREASED [None]
  - DYSARTHRIA [None]
  - PSYCHOTIC DISORDER [None]
  - RESTLESSNESS [None]
